FAERS Safety Report 7964545-X (Version None)
Quarter: 2011Q4

REPORT INFORMATION
  Report Type: 
  Country: None (occurrence: None)
  Receive Date: 20111206
  Receipt Date: 20111129
  Transmission Date: 20120403
  Serious: Yes (Other)
  Sender: FDA-Public Use
  Company Number: ADR-2011-11659

PATIENT
  Age: 10 Year
  Sex: Male

DRUGS (2)
  1. LIORESAL [Suspect]
     Indication: MUSCLE SPASTICITY
  2. LIORESAL [Suspect]
     Indication: CEREBRAL PALSY

REACTIONS (5)
  - UNDERDOSE [None]
  - IMPLANT SITE SWELLING [None]
  - IMPLANT SITE INFECTION [None]
  - PYREXIA [None]
  - MUSCLE SPASTICITY [None]
